FAERS Safety Report 18714539 (Version 2)
Quarter: 2021Q1

REPORT INFORMATION
  Report Type: Report from Study
  Country: US (occurrence: US)
  Receive Date: 20210108
  Receipt Date: 20210121
  Transmission Date: 20210419
  Serious: No
  Sender: FDA-Public Use
  Company Number: US-EMD SERONO-9210286

PATIENT
  Sex: Male

DRUGS (1)
  1. SEROSTIM [Suspect]
     Active Substance: SOMATROPIN
     Indication: CACHEXIA
     Dosage: MULTI DOSE 7?VIAL PACK
     Route: 058
     Dates: start: 20191114

REACTIONS (2)
  - Muscle atrophy [Unknown]
  - Hypomagnesaemia [Unknown]
